FAERS Safety Report 7638240-0 (Version None)
Quarter: 2011Q3

REPORT INFORMATION
  Report Type: 
  Country: None (occurrence: None)
  Receive Date: 20110720
  Receipt Date: 20110706
  Transmission Date: 20111222
  Serious: Yes (Other)
  Sender: FDA-Public Use
  Company Number: TPA2011A03775

PATIENT
  Age: 83 Year
  Sex: Female
  Weight: 52.1637 kg

DRUGS (3)
  1. ZOCOR [Concomitant]
  2. ACTOPLUS MET [Suspect]
     Indication: TYPE 2 DIABETES MELLITUS
     Dosage: 15 MG/850 MG BID, PER ORAL
     Route: 048
     Dates: start: 20100101
  3. LOTREL [Concomitant]

REACTIONS (1)
  - BLADDER CANCER [None]
